FAERS Safety Report 5877248-2 (Version None)
Quarter: 2008Q3

REPORT INFORMATION
  Report Type: 
  Country: None (occurrence: None)
  Receive Date: 20080903
  Receipt Date: 20080826
  Transmission Date: 20090109
  Serious: Yes (Other)
  Sender: FDA-Public Use
  Company Number: THYM-1000737

PATIENT
  Sex: Female
  Weight: 44 kg

DRUGS (3)
  1. THYMOGLOBULIN [Suspect]
     Indication: RENAL TRANSPLANT
     Dosage: 1.5MG/KG, QD; INTRAVENOUS
     Route: 042
     Dates: start: 20080104, end: 20080108
  2. PROGRAF [Concomitant]
  3. MYFORTIC [Concomitant]

REACTIONS (1)
  - RENAL GRAFT LOSS [None]
